FAERS Safety Report 4989386-7 (Version None)
Quarter: 2006Q2

REPORT INFORMATION
  Report Type: 
  Country: None (occurrence: None)
  Receive Date: 20060425
  Receipt Date: 20060413
  Transmission Date: 20061013
  Serious: Yes (Other)
  Sender: FDA-Public Use
  Company Number: 2006051132

PATIENT
  Age: 55 Year
  Sex: Male
  Weight: 61.2356 kg

DRUGS (2)
  1. LIPITOR [Suspect]
     Indication: BLOOD CHOLESTEROL INCREASED
     Dosage: 40 MG (40 MG, 1 IN 1 D), ORAL
     Route: 048
  2. LOPRESSOR [Concomitant]

REACTIONS (1)
  - MYOCARDIAL INFARCTION [None]
